FAERS Safety Report 18563726 (Version 1)
Quarter: 2020Q4

REPORT INFORMATION
  Report Type: Spontaneous
  Country: US (occurrence: US)
  Receive Date: 20201201
  Receipt Date: 20201201
  Transmission Date: 20210114
  Serious: No
  Sender: FDA-Public Use
  Company Number: US-TELIGENT, INC-20200700038

PATIENT
  Age: 52 Year
  Sex: Female
  Weight: 74.38 kg

DRUGS (2)
  1. CLOBETASOL PROPIONATE. [Suspect]
     Active Substance: CLOBETASOL PROPIONATE
     Indication: SKIN LESION
  2. CLOBETASOL PROPIONATE. [Suspect]
     Active Substance: CLOBETASOL PROPIONATE
     Indication: PSORIASIS
     Dosage: UNK, QD (ONCE A DAY)
     Route: 061
     Dates: start: 2010

REACTIONS (2)
  - Expired product administered [Unknown]
  - No adverse event [Unknown]
